FAERS Safety Report 10606629 (Version 1)
Quarter: 2014Q4

REPORT INFORMATION
  Report Type: Spontaneous
  Country: US (occurrence: None)
  Receive Date: 20141124
  Receipt Date: 20141124
  Transmission Date: 20150529
  Serious: Yes (Other)
  Sender: FDA-Public Use
  Company Number: None

PATIENT
  Age: 56 Year
  Sex: Male
  Weight: 92.7 kg

DRUGS (2)
  1. RIBASPHERE [Suspect]
     Active Substance: RIBAVIRIN
     Indication: HEPATITIS C
     Dosage: 600 MG DAILY, 2 TABS AM; 1 TAB PM, ORAL
     Route: 048
     Dates: start: 20141101
  2. SOVALDI [Suspect]
     Active Substance: SOFOSBUVIR
     Indication: HEPATITIS C
     Route: 048
     Dates: start: 20141101

REACTIONS (2)
  - Creatinine renal clearance decreased [None]
  - Anaemia [None]

NARRATIVE: CASE EVENT DATE: 20141121
